FAERS Safety Report 5387222-0 (Version None)
Quarter: 2007Q3

REPORT INFORMATION
  Report Type: 
  Country: None (occurrence: None)
  Receive Date: 20070716
  Receipt Date: 20070710
  Transmission Date: 20080115
  Serious: Yes (Disabling)
  Sender: FDA-Public Use
  Company Number: JP-SP-2007-02520

PATIENT
  Age: 64 Year
  Sex: Male

DRUGS (3)
  1. IMMUCYST [Suspect]
     Indication: BLADDER CANCER
     Route: 043
  2. CEFCAPENE PIVOXIL HYDROCHLORIDE [Concomitant]
  3. ISONIAZID [Concomitant]

REACTIONS (3)
  - CONTRACTED BLADDER [None]
  - DYSURIA [None]
  - POLLAKIURIA [None]
